FAERS Safety Report 26115184 (Version 2)
Quarter: 2025Q4

REPORT INFORMATION
  Report Type: Spontaneous
  Country: US (occurrence: US)
  Receive Date: 20251203
  Receipt Date: 20251208
  Transmission Date: 20260118
  Serious: No
  Sender: ROCHE
  Company Number: US-ROCHE-10000447619

PATIENT
  Age: 16 Year
  Sex: Male

DRUGS (4)
  1. XOLAIR [Suspect]
     Active Substance: OMALIZUMAB
     Indication: Urticaria
     Dosage: LAST DATE OMALIZUMAB WAS ADMINISTERED: 10-JUL-2025
  2. REMIBRUTINIB [Concomitant]
     Active Substance: REMIBRUTINIB
     Indication: Chronic spontaneous urticaria
  3. DUPIXENT [Concomitant]
     Active Substance: DUPILUMAB
     Indication: Urticaria
  4. CYCLOSPORINE [Concomitant]
     Active Substance: CYCLOSPORINE
     Indication: Urticaria

REACTIONS (2)
  - Off label use [Unknown]
  - No adverse event [Unknown]
